FAERS Safety Report 8156907-5 (Version None)
Quarter: 2012Q1

REPORT INFORMATION
  Report Type: 
  Country: None (occurrence: None)
  Receive Date: 20120222
  Receipt Date: 20120215
  Transmission Date: 20120608
  Serious: Yes (Hospitalization)
  Sender: FDA-Public Use
  Company Number: US-BRISTOL-MYERS SQUIBB COMPANY-16400582

PATIENT
  Age: 77 Year
  Sex: Female
  Weight: 53 kg

DRUGS (1)
  1. ERBITUX [Suspect]
     Indication: HEAD AND NECK CANCER
     Dosage: 8 WKS OF WEEKLY CETUXIMAB
     Dates: start: 20111220, end: 20120208

REACTIONS (2)
  - VOMITING [None]
  - COGNITIVE DISORDER [None]
